FAERS Safety Report 5674763-1 (Version None)
Quarter: 2008Q1

REPORT INFORMATION
  Report Type: 
  Country: None (occurrence: None)
  Receive Date: 20080319
  Receipt Date: 20080319
  Transmission Date: 20080703
  Serious: Yes (Hospitalization)
  Sender: FDA-Public Use
  Company Number: None

PATIENT
  Sex: Male
  Weight: 20.2 kg

DRUGS (1)
  1. TOPIRAMATE [Suspect]
     Indication: EPILEPSY
     Dosage: 100 MG BID PO
     Route: 048
     Dates: start: 20080201, end: 20080213

REACTIONS (6)
  - ABNORMAL BEHAVIOUR [None]
  - COMMUNICATION DISORDER [None]
  - DELIRIUM [None]
  - DRUG PRESCRIBING ERROR [None]
  - DYSARTHRIA [None]
  - OVERDOSE [None]
